FAERS Safety Report 5899980-7 (Version None)
Quarter: 2008Q3

REPORT INFORMATION
  Report Type: 
  Country: None (occurrence: None)
  Receive Date: 20080926
  Receipt Date: 20080925
  Transmission Date: 20090109
  Serious: Yes (Hospitalization)
  Sender: FDA-Public Use
  Company Number: B0538770A

PATIENT
  Age: 19 Year
  Sex: Female

DRUGS (4)
  1. SAWACILLIN [Suspect]
     Indication: NASOPHARYNGITIS
     Dosage: 250MG THREE TIMES PER DAY
     Route: 048
     Dates: start: 20070914, end: 20070924
  2. LOXONIN [Suspect]
     Indication: NASOPHARYNGITIS
     Dosage: 60MG THREE TIMES PER DAY
     Route: 048
     Dates: start: 20070914, end: 20070924
  3. TRANSAMIN [Suspect]
     Indication: NASOPHARYNGITIS
     Dosage: 250MG THREE TIMES PER DAY
     Route: 048
     Dates: start: 20070914, end: 20070924
  4. TROXSIN [Concomitant]

REACTIONS (7)
  - ERYTHEMA [None]
  - ERYTHEMA MULTIFORME [None]
  - NO THERAPEUTIC RESPONSE [None]
  - PAIN [None]
  - PIGMENTATION DISORDER [None]
  - PRURITUS [None]
  - PYREXIA [None]
